FAERS Safety Report 19487922 (Version 2)
Quarter: 2021Q3

REPORT INFORMATION
  Report Type: Report from Study
  Country: US (occurrence: US)
  Receive Date: 20210702
  Receipt Date: 20210712
  Transmission Date: 20211014
  Serious: Yes (Death, Hospitalization)
  Sender: FDA-Public Use
  Company Number: US-ALLERGAN-2124416US

PATIENT
  Sex: Male

DRUGS (1)
  1. MEMANTINE HCL 28MG CAP (TBD) [Suspect]
     Active Substance: MEMANTINE
     Indication: DEMENTIA ALZHEIMER^S TYPE
     Dosage: 28 MG, QD
     Route: 048

REACTIONS (2)
  - Pneumonia [Unknown]
  - Dementia Alzheimer^s type [Fatal]

NARRATIVE: CASE EVENT DATE: 202106
